FAERS Safety Report 12689718 (Version 1)
Quarter: 2016Q3

REPORT INFORMATION
  Report Type: Spontaneous
  Country: US (occurrence: US)
  Receive Date: 20160826
  Receipt Date: 20160826
  Transmission Date: 20161109
  Serious: Yes (Hospitalization)
  Sender: FDA-Public Use
  Company Number: US-BRISTOL-MYERS SQUIBB COMPANY-BMS-2016-066970

PATIENT
  Sex: Female

DRUGS (2)
  1. COUMADIN [Suspect]
     Active Substance: WARFARIN SODIUM
     Indication: THROMBOSIS
     Dosage: UNK
     Route: 065
     Dates: start: 2008
  2. COUMADIN [Suspect]
     Active Substance: WARFARIN SODIUM
     Dosage: 4 MG, UNK
     Route: 065
     Dates: start: 20160721

REACTIONS (6)
  - Surgery [Unknown]
  - Malaise [Unknown]
  - International normalised ratio increased [Unknown]
  - Rash [Unknown]
  - Fracture [Unknown]
  - Urticaria [Unknown]
